FAERS Safety Report 7454511-5 (Version None)
Quarter: 2011Q2

REPORT INFORMATION
  Report Type: 
  Country: None (occurrence: None)
  Receive Date: 20110503
  Receipt Date: 20110420
  Transmission Date: 20111010
  Serious: No
  Sender: FDA-Public Use
  Company Number: PHHY2010US68873

PATIENT
  Sex: Male

DRUGS (15)
  1. ASPIRIN [Concomitant]
     Dosage: UNK
  2. ALLOPURINOL [Concomitant]
     Indication: GOUT
     Dosage: 300 MG, DAILY
     Dates: start: 20100826
  3. AMLODIPINE [Concomitant]
  4. TASIGNA [Suspect]
     Dosage: 150 MG, BID
     Route: 048
     Dates: start: 20100101
  5. LISINOPRIL [Concomitant]
     Dosage: UNK
  6. GLUCOSAMINE [Concomitant]
     Dosage: UNK
  7. ACTOS [Concomitant]
  8. LEVOTHYROXINE [Concomitant]
     Dosage: UNK
  9. TASIGNA [Suspect]
     Indication: CHRONIC MYELOID LEUKAEMIA
     Dosage: 300 MG, BID
     Route: 048
     Dates: start: 20100910
  10. LANTUS [Concomitant]
  11. METFORMIN HYDROCHLORIDE [Concomitant]
     Dosage: UNK
  12. SAW PALMETTO [Concomitant]
     Dosage: UNK
  13. VITAMIN D [Concomitant]
  14. LESCOL [Concomitant]
     Dosage: UNK
  15. SIMVASTATIN [Concomitant]

REACTIONS (10)
  - FLATULENCE [None]
  - NAUSEA [None]
  - DYSPEPSIA [None]
  - DIARRHOEA [None]
  - RASH PRURITIC [None]
  - ABDOMINAL DISCOMFORT [None]
  - ABDOMINAL DISTENSION [None]
  - FATIGUE [None]
  - DECREASED APPETITE [None]
  - CONJUNCTIVITIS [None]
